FAERS Safety Report 9028427 (Version 1)
Quarter: 2013Q1

REPORT INFORMATION
  Report Type: Spontaneous
  Country: US (occurrence: US)
  Receive Date: 20130124
  Receipt Date: 20130124
  Transmission Date: 20140127
  Serious: Yes (Other)
  Sender: FDA-Public Use
  Company Number: US-PFIZER INC-2013029103

PATIENT
  Age: 62 Year
  Sex: Female
  Weight: 70.3 kg

DRUGS (8)
  1. LYRICA [Suspect]
     Indication: NEUROPATHY PERIPHERAL
     Dosage: 75 MG, 3X/DAY
     Route: 048
     Dates: start: 2012
  2. BACTRIM [Suspect]
     Indication: SINUSITIS
     Dosage: UNK
     Dates: start: 20130102, end: 201301
  3. INSULIN [Concomitant]
     Indication: DIABETES MELLITUS
     Dosage: 35 UNITS, 1X/DAY
  4. GLIPIZIDE [Concomitant]
     Indication: DIABETES MELLITUS
     Dosage: UNK, 2X/DAY
  5. JANUVIA [Concomitant]
     Indication: DIABETES MELLITUS
     Dosage: UNK
  6. PRAVASTATIN [Concomitant]
     Indication: BLOOD CHOLESTEROL ABNORMAL
     Dosage: UNK
  7. TRAMADOL [Concomitant]
     Indication: PAIN IN EXTREMITY
     Dosage: UNK
  8. FLEXERIL [Concomitant]
     Indication: PAIN IN EXTREMITY
     Dosage: UNK

REACTIONS (6)
  - Drug hypersensitivity [Recovered/Resolved]
  - Urticaria [Recovered/Resolved]
  - Pruritus [Recovered/Resolved]
  - Generalised erythema [Recovered/Resolved]
  - Throat tightness [Recovered/Resolved]
  - Sinusitis [Unknown]
